FAERS Safety Report 13792899 (Version 1)
Quarter: 2017Q3

REPORT INFORMATION
  Report Type: Spontaneous
  Country: TR (occurrence: TR)
  Receive Date: 20170726
  Receipt Date: 20170726
  Transmission Date: 20171127
  Serious: Yes (Hospitalization, Other)
  Sender: FDA-Public Use
  Company Number: TR-LUPIN PHARMACEUTICALS INC.-2017-04017

PATIENT
  Age: 39 Year
  Sex: Male

DRUGS (1)
  1. LEVETIRACETAM 1000 MG TABLETS [Suspect]
     Active Substance: LEVETIRACETAM
     Indication: PRODUCT USED FOR UNKNOWN INDICATION
     Dosage: 16 G, SINGLE
     Route: 048

REACTIONS (2)
  - Overdose [Unknown]
  - Acute myocardial infarction [Recovering/Resolving]
